FAERS Safety Report 8256728-9 (Version None)
Quarter: 2012Q2

REPORT INFORMATION
  Report Type: 
  Country: None (occurrence: None)
  Receive Date: 20120403
  Receipt Date: 20120327
  Transmission Date: 20120825
  Serious: Yes (Other)
  Sender: FDA-Public Use
  Company Number: US-JNJFOC-20120315194

PATIENT
  Sex: Female

DRUGS (1)
  1. BENADRYL [Suspect]
     Indication: MULTIPLE ALLERGIES
     Route: 048

REACTIONS (4)
  - SYNCOPE [None]
  - NIGHTMARE [None]
  - DRUG INEFFECTIVE [None]
  - SEDATION [None]
